FAERS Safety Report 7609085-2 (Version None)
Quarter: 2011Q3

REPORT INFORMATION
  Report Type: 
  Country: None (occurrence: None)
  Receive Date: 20110706
  Receipt Date: 20110621
  Transmission Date: 20111222
  Serious: Yes (Other)
  Sender: FDA-Public Use
  Company Number: 2011MA007875

PATIENT
  Age: 9 Year
  Sex: Male

DRUGS (3)
  1. CYTARABINE [Concomitant]
  2. HYDROCORTISONE 2.5% CREAM [Suspect]
     Indication: HEREDITARY OPTIC ATROPHY
     Dosage: INTH
     Route: 037
  3. METHOTREXATE [Concomitant]

REACTIONS (2)
  - LEUKOENCEPHALOPATHY [None]
  - SPEECH DISORDER DEVELOPMENTAL [None]
